FAERS Safety Report 16266075 (Version 3)
Quarter: 2019Q4

REPORT INFORMATION
  Report Type: Spontaneous
  Country: CA (occurrence: CA)
  Receive Date: 20190502
  Receipt Date: 20191114
  Transmission Date: 20200122
  Serious: Yes (Life-Threatening, Hospitalization, Disabling, Congenital Anomaly, Other)
  Sender: FDA-Public Use
  Company Number: CA-TEVA-2019-CA-1042363

PATIENT
  Age: 49 Year
  Sex: Female
  Weight: 56 kg

DRUGS (44)
  1. VASOPRESSIN INJECTION, USP [Suspect]
     Active Substance: VASOPRESSIN
     Indication: BLOOD PRESSURE MEASUREMENT
     Route: 065
  2. HEPARIN SODIUM IN .9% SOIDUM CHLORIDE INJECTION [Suspect]
     Active Substance: HEPARIN SODIUM\SODIUM CHLORIDE
     Indication: PRODUCT USED FOR UNKNOWN INDICATION
     Route: 065
  3. CALCIUM GLUCONATE. [Concomitant]
     Active Substance: CALCIUM GLUCONATE
     Route: 065
  4. MINERALS/VITAMINS NOS [Concomitant]
     Active Substance: MINERALS\VITAMINS
  5. ACTIVATED CHARCOAL. [Concomitant]
     Active Substance: ACTIVATED CHARCOAL
     Route: 065
  6. ESCITALOPRAM [Concomitant]
     Active Substance: ESCITALOPRAM OXALATE
     Route: 065
  7. LORAZEPAM. [Concomitant]
     Active Substance: LORAZEPAM
  8. AMLODIPINE [Suspect]
     Active Substance: AMLODIPINE BESYLATE
     Indication: INTENTIONAL OVERDOSE
     Route: 048
  9. NOREPINEPHRINE BITARTRATE INJ 1MG/ML USP [Suspect]
     Active Substance: NOREPINEPHRINE BITARTRATE
     Indication: BLOOD PRESSURE MEASUREMENT
     Dosage: FORM OF ADMIN:LIQUID INTRAVENOUS
     Route: 065
  10. DEXTROSE 5% INJECTION USP [Suspect]
     Active Substance: DEXTROSE\WATER
     Indication: PRODUCT USED FOR UNKNOWN INDICATION
     Route: 042
  11. FENTANYL CITRATE INJECTION [Suspect]
     Active Substance: FENTANYL CITRATE
     Indication: INDUCTION OF ANAESTHESIA
     Dosage: 75 MICROGRAM DAILY;
     Route: 042
  12. LIDOCAINE HCL 0.4% AND 5% DEXTROSE INJ [Suspect]
     Active Substance: DEXTROSE\LIDOCAINE HYDROCHLORIDE
     Indication: PRODUCT USED FOR UNKNOWN INDICATION
     Dosage: 20 MILLIGRAM DAILY;
     Route: 042
  13. VASOPRESSIN INJECTION, USP [Concomitant]
     Active Substance: VASOPRESSIN
     Route: 065
  14. RISPERIDONE. [Suspect]
     Active Substance: RISPERIDONE
     Dosage: 6 MILLIGRAM DAILY;
     Route: 065
  15. ESCITALOPRAM [Suspect]
     Active Substance: ESCITALOPRAM OXALATE
     Indication: INTENTIONAL OVERDOSE
     Route: 048
  16. POTASSIUM CHLORIDE. [Suspect]
     Active Substance: POTASSIUM CHLORIDE
     Route: 042
  17. CEFAZOLIN [Suspect]
     Active Substance: CEFAZOLIN
     Indication: ANTIBIOTIC PROPHYLAXIS
     Dosage: 2 GRAM DAILY;
     Route: 042
  18. MIDAZOLAM [Suspect]
     Active Substance: MIDAZOLAM HYDROCHLORIDE
     Indication: INDUCTION OF ANAESTHESIA
     Dosage: 2 MILLIGRAM DAILY;
     Route: 042
  19. NOREPINEPHRINE. [Concomitant]
     Active Substance: NOREPINEPHRINE
     Route: 065
  20. RISPERIDONE. [Concomitant]
     Active Substance: RISPERIDONE
     Route: 065
  21. ROCURONIUM [Concomitant]
     Active Substance: ROCURONIUM BROMIDE
  22. AMLODIPINE [Suspect]
     Active Substance: AMLODIPINE BESYLATE
     Route: 048
  23. ESCITALOPRAM [Suspect]
     Active Substance: ESCITALOPRAM OXALATE
     Indication: INTENTIONAL OVERDOSE
     Dosage: 60 MILLIGRAM DAILY;
     Route: 065
  24. EPINEPHRINE. [Concomitant]
     Active Substance: EPINEPHRINE
     Dosage: FORM OF ADMIN:NOT SPECIFIED
     Route: 065
  25. POTASSIUM CHLORIDE. [Concomitant]
     Active Substance: POTASSIUM CHLORIDE
     Dosage: FORM OF ADMIN:NOT SPECIFIED
     Route: 065
  26. NEOSTIGMINE METHYLSULFATE INJECTION USP [Concomitant]
  27. ESCITALOPRAM [Suspect]
     Active Substance: ESCITALOPRAM OXALATE
     Indication: PRODUCT USED FOR UNKNOWN INDICATION
     Route: 048
  28. POTASSIUM CHLORIDE. [Suspect]
     Active Substance: POTASSIUM CHLORIDE
     Indication: ELECTROLYTE SUBSTITUTION THERAPY
     Route: 048
  29. PROPOFOL. [Suspect]
     Active Substance: PROPOFOL
     Indication: PRODUCT USED FOR UNKNOWN INDICATION
     Dosage: 200 MILLIGRAM DAILY;
     Route: 042
  30. DEXMEDETOMIDINE HYDROCHLORIDE FOR INJECTION [Suspect]
     Active Substance: DEXMEDETOMIDINE HYDROCHLORIDE
     Indication: INDUCTION OF ANAESTHESIA
     Dosage: 20 MICROGRAM DAILY;
     Route: 042
  31. INSULIN [Concomitant]
     Active Substance: INSULIN NOS
     Route: 065
  32. KETOROLAC [Concomitant]
     Active Substance: KETOROLAC TROMETHAMINE
  33. RISPERIDONE. [Suspect]
     Active Substance: RISPERIDONE
     Indication: PRODUCT USED FOR UNKNOWN INDICATION
     Route: 048
  34. RISPERIDONE. [Suspect]
     Active Substance: RISPERIDONE
     Route: 048
  35. EPINEPHRINE. [Suspect]
     Active Substance: EPINEPHRINE
     Indication: BLOOD PRESSURE MEASUREMENT
     Route: 065
  36. GLUCOSE [Suspect]
     Active Substance: DEXTROSE
     Indication: RESUSCITATION
     Route: 065
  37. AMLODIPINE [Concomitant]
     Active Substance: AMLODIPINE BESYLATE
  38. DOCUSATE SODIUM. [Concomitant]
     Active Substance: DOCUSATE SODIUM
  39. IRON [Concomitant]
     Active Substance: IRON
  40. NAPROSYN [Concomitant]
     Active Substance: NAPROXEN
  41. AMLODIPINE [Suspect]
     Active Substance: AMLODIPINE BESYLATE
     Indication: PRODUCT USED FOR UNKNOWN INDICATION
     Route: 065
  42. KETAMINE [Suspect]
     Active Substance: KETAMINE
     Indication: INDUCTION OF ANAESTHESIA
     Dosage: 75 MICROGRAM DAILY;
     Route: 042
  43. DEXTROSE. [Concomitant]
     Active Substance: DEXTROSE
     Route: 065
  44. GLUCAGON. [Concomitant]
     Active Substance: GLUCAGON
     Dosage: FORM OF ADMIN:KIT
     Route: 065

REACTIONS (38)
  - Blindness [Unknown]
  - Ischaemia [Unknown]
  - Optic atrophy [Not Recovered/Not Resolved]
  - Pulmonary oedema [Not Recovered/Not Resolved]
  - Toxicity to various agents [Unknown]
  - Blindness cortical [Unknown]
  - Cardiogenic shock [Unknown]
  - Cerebral infarction [Unknown]
  - Electrocardiogram P wave abnormal [Unknown]
  - Intentional overdose [Unknown]
  - Altered state of consciousness [Unknown]
  - Condition aggravated [Unknown]
  - Reversible cerebral vasoconstriction syndrome [Not Recovered/Not Resolved]
  - Visual impairment [Unknown]
  - Anuria [Not Recovered/Not Resolved]
  - Cytotoxic oedema [Unknown]
  - Electrocardiogram ST segment depression [Unknown]
  - Embolism arterial [Unknown]
  - Optic nerve injury [Unknown]
  - Renal tubular necrosis [Unknown]
  - CSF pressure increased [Unknown]
  - Electrocardiogram U wave present [Unknown]
  - Hyperdynamic left ventricle [Unknown]
  - Tachycardia [Unknown]
  - Circulatory collapse [Unknown]
  - Hypokalaemia [Not Recovered/Not Resolved]
  - Hypotension [Unknown]
  - Hypothermia [Unknown]
  - Retinal ischaemia [Unknown]
  - Colour blindness [Unknown]
  - Depressed level of consciousness [Unknown]
  - Electrocardiogram T wave amplitude decreased [Unknown]
  - Hypoglycaemia [Not Recovered/Not Resolved]
  - Overdose [Unknown]
  - Shock [Unknown]
  - Generalised tonic-clonic seizure [Recovered/Resolved]
  - Electrocardiogram T wave inversion [Unknown]
  - Embolism [Unknown]
